FAERS Safety Report 10033205 (Version 2)
Quarter: 2014Q2

REPORT INFORMATION
  Report Type: Spontaneous
  Country: US (occurrence: US)
  Receive Date: 20140324
  Receipt Date: 20140430
  Transmission Date: 20141212
  Serious: No
  Sender: FDA-Public Use
  Company Number: US-009507513-1403USA004274

PATIENT
  Sex: Female
  Weight: 68.27 kg

DRUGS (4)
  1. OXYTROL FOR WOMEN [Suspect]
     Indication: BLADDER DISORDER
     Dosage: 1 DF, Q4D
     Route: 062
     Dates: start: 20140209, end: 20140224
  2. OXYTROL FOR WOMEN [Suspect]
     Indication: URINARY INCONTINENCE
  3. CALCIUM D3 [Concomitant]
     Indication: OSTEOPENIA
     Dosage: UNK, UNKNOWN
  4. ASPIRIN [Concomitant]
     Indication: CARDIOVASCULAR EVENT PROPHYLAXIS
     Dosage: 81 MG, UNKNOWN

REACTIONS (6)
  - Application site inflammation [Recovered/Resolved]
  - Application site irritation [Recovered/Resolved]
  - Application site rash [Recovering/Resolving]
  - Application site erythema [Recovering/Resolving]
  - Drug effect decreased [Unknown]
  - Product adhesion issue [Unknown]
